FAERS Safety Report 7934065-7 (Version None)
Quarter: 2011Q4

REPORT INFORMATION
  Report Type: 
  Country: None (occurrence: None)
  Receive Date: 20111122
  Receipt Date: 20111107
  Transmission Date: 20120403
  Serious: Yes (Death, Life-Threatening)
  Sender: FDA-Public Use
  Company Number: US-ROCHE-451648

PATIENT
  Sex: Female
  Weight: 62 kg

DRUGS (6)
  1. HERCEPTIN [Suspect]
     Dosage: OVER 90 MIN (LOADING DOSE) ON DAY 1 OF WK 13 ONLY
     Route: 042
  2. PACLITAXEL [Suspect]
     Indication: BREAST CANCER
     Dosage: OVER 1 HR Q WK STARTING DAY 1 OF WK 13, X 12
     Route: 042
     Dates: start: 20050506, end: 20051021
  3. ATENOLOL [Concomitant]
  4. HERCEPTIN [Suspect]
     Indication: BREAST CANCER
     Dosage: OVER 90 MIN (LOADING DOSE) ON DAY 1 OF WK 13 ONLY
     Route: 042
  5. DOXORUBICIN HYDROCHLORIDE [Suspect]
     Indication: BREAST CANCER
     Dosage: IVP ON DAY 1 Q21 DAYS, X 4
     Route: 042
     Dates: start: 20050506, end: 20050708
  6. CYCLOPHOSPHAMIDE [Suspect]
     Indication: BREAST CANCER
     Dosage: OVER 30 MIN, ON DAY 1 Q21 DAY, X 4
     Route: 042
     Dates: start: 20050506, end: 20050708

REACTIONS (5)
  - HYPOTENSION [None]
  - ACIDOSIS [None]
  - SEPSIS [None]
  - HYPOXIA [None]
  - MULTI-ORGAN FAILURE [None]
